FAERS Safety Report 17197033 (Version 1)
Quarter: 2019Q4

REPORT INFORMATION
  Report Type: Spontaneous
  Country: US (occurrence: US)
  Receive Date: 20191224
  Receipt Date: 20191224
  Transmission Date: 20200122
  Serious: No
  Sender: FDA-Public Use
  Company Number: US-SA-2019SA354459

PATIENT
  Age: 33 Year
  Sex: Female

DRUGS (8)
  1. MAGNESIUM [Concomitant]
     Active Substance: MAGNESIUM
  2. ATIVAN [Concomitant]
     Active Substance: LORAZEPAM
  3. NORCO [Concomitant]
     Active Substance: ACETAMINOPHEN\HYDROCODONE BITARTRATE
  4. NAPROSYN E [Concomitant]
     Active Substance: NAPROXEN
  5. HYDROCORTISONE. [Concomitant]
     Active Substance: HYDROCORTISONE
  6. ZINC SULFATE. [Concomitant]
     Active Substance: ZINC SULFATE
  7. TAXOTERE [Suspect]
     Active Substance: DOCETAXEL
  8. IRON [Concomitant]
     Active Substance: IRON

REACTIONS (2)
  - Swelling [Unknown]
  - Rash [Unknown]
